FAERS Safety Report 7164809-6 (Version None)
Quarter: 2010Q4

REPORT INFORMATION
  Report Type: 
  Country: None (occurrence: None)
  Receive Date: 20101215
  Receipt Date: 20101207
  Transmission Date: 20110411
  Serious: Yes (Other)
  Sender: FDA-Public Use
  Company Number: CA-PFIZER INC-2010141329

PATIENT
  Age: 33 Year
  Sex: Male
  Weight: 95.238 kg

DRUGS (7)
  1. ZELDOX [Suspect]
     Indication: PSYCHOTIC DISORDER
     Dosage: 20 MG, 2X/DAY
     Route: 048
     Dates: start: 20101027, end: 20101028
  2. ZELDOX [Suspect]
     Indication: DEPRESSION
  3. PROZAC [Concomitant]
     Indication: DEPRESSION
     Dosage: 60 MG, UNK
     Dates: start: 20080101
  4. PROZAC [Concomitant]
     Dosage: 40 MG, UNK
  5. PROZAC [Concomitant]
     Dosage: 20 MG, UNK
     Dates: end: 20101028
  6. REMERON [Concomitant]
     Indication: DEPRESSION
     Dosage: 7.5 MG, AT BEDTIME
     Dates: start: 20080101, end: 20101028
  7. WELLBUTRIN SR [Concomitant]
     Indication: DEPRESSION
     Dosage: 100 MG, 2X/DAY AM AND 5PM
     Route: 048
     Dates: start: 20080101

REACTIONS (4)
  - BRADYCARDIA [None]
  - FATIGUE [None]
  - HYPERSOMNIA [None]
  - HYPOTENSION [None]
